FAERS Safety Report 10280502 (Version 2)
Quarter: 2014Q3

REPORT INFORMATION
  Report Type: Spontaneous
  Country: US (occurrence: None)
  Receive Date: 20140702
  Receipt Date: 20140728
  Transmission Date: 20150326
  Serious: Yes (Hospitalization)
  Sender: FDA-Public Use
  Company Number: 2014-US-007608

PATIENT
  Age: 49 Year
  Sex: Male

DRUGS (1)
  1. XYREM [Suspect]
     Active Substance: SODIUM OXYBATE
     Indication: NARCOLEPSY
     Route: 048
     Dates: start: 200912

REACTIONS (6)
  - Head injury [None]
  - Joint injury [None]
  - Musculoskeletal pain [None]
  - Arthralgia [None]
  - Excoriation [None]
  - Fall [None]

NARRATIVE: CASE EVENT DATE: 2014
